FAERS Safety Report 6199494-3 (Version None)
Quarter: 2009Q2

REPORT INFORMATION
  Report Type: 
  Country: None (occurrence: None)
  Receive Date: 20090520
  Receipt Date: 20090520
  Transmission Date: 20091009
  Serious: No
  Sender: FDA-Public Use
  Company Number: None

PATIENT
  Age: 57 Year
  Sex: Female
  Weight: 48.9885 kg

DRUGS (1)
  1. ACTONEL [Suspect]
     Dosage: 150 MG MONTHLY TABLET
     Dates: start: 20090501

REACTIONS (6)
  - BACK PAIN [None]
  - DIARRHOEA [None]
  - ERYTHEMA [None]
  - INFLUENZA LIKE ILLNESS [None]
  - MYALGIA [None]
  - OEDEMA PERIPHERAL [None]
